FAERS Safety Report 19835724 (Version 1)
Quarter: 2021Q3

REPORT INFORMATION
  Report Type: Spontaneous
  Country: RU (occurrence: RU)
  Receive Date: 20210914
  Receipt Date: 20210914
  Transmission Date: 20211014
  Serious: Yes (Other)
  Sender: FDA-Public Use
  Company Number: NVSC2021RU203925

PATIENT
  Sex: Male
  Weight: 80 kg

DRUGS (1)
  1. JADENU [Suspect]
     Active Substance: DEFERASIROX
     Indication: PRODUCT USED FOR UNKNOWN INDICATION
     Dosage: 360 MG (2?3 TABLETS PER DAY ON CONTINUOUS BASIS)
     Route: 065

REACTIONS (5)
  - Thrombosis [Unknown]
  - Serum ferritin increased [Unknown]
  - Drug ineffective [Unknown]
  - Disease progression [Unknown]
  - Product quality issue [Unknown]
